FAERS Safety Report 7259280 (Version 4)
Quarter: 2014Q1

REPORT INFORMATION
  Report Type: Spontaneous
  Country: US (occurrence: US)
  Receive Date: 20100128
  Receipt Date: 20140106
  Transmission Date: 20141002
  Serious: Yes (Hospitalization, Other)
  Sender: FDA-Public Use
  Company Number: US-BAYER-201012372NA

PATIENT
  Age: 15 Year
  Sex: Female
  Weight: 95.46 kg

DRUGS (19)
  1. YAZ [Suspect]
     Indication: POLYCYSTIC OVARIES
     Route: 048
     Dates: start: 20070625, end: 200906
  2. YAZ [Suspect]
     Indication: ACNE
  3. NSAID^S [Concomitant]
     Dates: start: 2003
  4. GLUCOPHAG [Concomitant]
     Dates: start: 2007, end: 200906
  5. METFORMIN [Concomitant]
  6. AZITHROMYCIN [Concomitant]
  7. DECONGESTANTS AND ANTIALLERGICS [Concomitant]
  8. HISTA-VENT DA [Concomitant]
  9. PREVACID [Concomitant]
  10. DRYSOL [Concomitant]
  11. SYMBICORT [Concomitant]
  12. CHLORDIAZEPOXIDE [Concomitant]
  13. DICYCLOMINE [Concomitant]
  14. ACTICIN [Concomitant]
  15. OMEPRAZOLE [Concomitant]
  16. FLUOCHLORIDE [Concomitant]
  17. NECON [Concomitant]
  18. CHLORHEXIDINE [Concomitant]
  19. DOXYCYCLINE [Concomitant]
     Dates: start: 200701, end: 20081231

REACTIONS (13)
  - Abdominal pain [Unknown]
  - Nausea [Unknown]
  - Gallbladder non-functioning [Unknown]
  - Erosive oesophagitis [Unknown]
  - Hiatus hernia [Unknown]
  - Gastroduodenitis [Unknown]
  - Enteritis [Unknown]
  - Gastrointestinal disorder [Unknown]
  - Haemorrhoids [Unknown]
  - Pain [Unknown]
  - Cholecystitis chronic [None]
  - Biliary dyskinesia [None]
  - Off label use [None]
